FAERS Safety Report 25976050 (Version 1)
Quarter: 2025Q4

REPORT INFORMATION
  Report Type: Report from Study
  Country: IN (occurrence: IN)
  Receive Date: 20251029
  Receipt Date: 20251029
  Transmission Date: 20260117
  Serious: Yes (Death)
  Sender: ROCHE
  Company Number: IN-ROCHE-10000422692

PATIENT
  Age: 73 Year
  Sex: Male
  Weight: 56 kg

DRUGS (1)
  1. TECENTRIQ [Suspect]
     Active Substance: ATEZOLIZUMAB
     Indication: Small cell lung cancer metastatic
     Route: 042
     Dates: start: 20250220

REACTIONS (1)
  - Death [Fatal]

NARRATIVE: CASE EVENT DATE: 20251027
